FAERS Safety Report 6099249-4 (Version None)
Quarter: 2009Q1

REPORT INFORMATION
  Report Type: 
  Country: None (occurrence: None)
  Receive Date: 20090303
  Receipt Date: 20090225
  Transmission Date: 20090719
  Serious: No
  Sender: FDA-Public Use
  Company Number: US-JNJFOC-20090206598

PATIENT
  Sex: Male
  Weight: 83.92 kg

DRUGS (3)
  1. DURAGESIC-100 [Suspect]
     Indication: ARTHRALGIA
     Route: 062
  2. DURAGESIC-100 [Suspect]
     Indication: BACK PAIN
     Route: 062
  3. NORVASC [Concomitant]
     Indication: HYPERTENSION
     Route: 048

REACTIONS (1)
  - TREATMENT NONCOMPLIANCE [None]
